FAERS Safety Report 22126386 (Version 1)
Quarter: 2023Q1

REPORT INFORMATION
  Report Type: Spontaneous
  Country: GR (occurrence: GR)
  Receive Date: 20230322
  Receipt Date: 20230322
  Transmission Date: 20230417
  Serious: No
  Sender: FDA-Public Use
  Company Number: GR-PFIZER INC-PV202300045169

PATIENT
  Age: 11 Year
  Sex: Male
  Weight: 25 kg

DRUGS (1)
  1. GENOTROPIN [Suspect]
     Active Substance: SOMATROPIN
     Indication: Growth hormone deficiency
     Dosage: 5.3 MG (5,3MG PEN)
     Route: 058
     Dates: start: 202104

REACTIONS (1)
  - Device mechanical issue [Unknown]
